FAERS Safety Report 9390437 (Version 1)
Quarter: 2013Q2

REPORT INFORMATION
  Report Type: Spontaneous
  Country: US (occurrence: None)
  Receive Date: 20130624
  Receipt Date: 20130624
  Transmission Date: 20140414
  Serious: Yes (Other)
  Sender: FDA-Public Use
  Company Number: 2013036554

PATIENT
  Age: 54 Year
  Sex: Female

DRUGS (2)
  1. CARIMUNE [Suspect]
     Indication: HLA MARKER STUDY POSITIVE
     Dosage: 140 G TOTAL, OVER 8 HOURS, 70 MG X 2 INTRAVENOUS (NOT OTHERWISE SPECIFIED)
     Route: 042
  2. CONTRASTE DYE (IODINE) [Concomitant]

REACTIONS (2)
  - Haemodialysis [None]
  - Renal failure acute [None]
